FAERS Safety Report 7489403-9 (Version None)
Quarter: 2011Q2

REPORT INFORMATION
  Report Type: 
  Country: None (occurrence: None)
  Receive Date: 20110518
  Receipt Date: 20110510
  Transmission Date: 20111010
  Serious: Yes (Hospitalization)
  Sender: FDA-Public Use
  Company Number: GB-MILLENNIUM PHARMACEUTICALS, INC.-2011-00190

PATIENT

DRUGS (19)
  1. PREDNISONE [Suspect]
     Indication: MANTLE CELL LYMPHOMA
     Dosage: 100 MG, UNK
     Route: 048
     Dates: start: 20090911
  2. CYCLOPHOSPHAMIDE [Suspect]
     Indication: MANTLE CELL LYMPHOMA
     Dosage: 1380 MG, UNK
     Route: 042
     Dates: start: 20090911
  3. VINCRISTINE [Suspect]
     Indication: MANTLE CELL LYMPHOMA
     Dosage: 2 MG, UNK
     Route: 042
     Dates: start: 20090911
  4. AZITHROMYCIN [Concomitant]
     Dosage: 500 MG, UNK
     Route: 048
     Dates: start: 20090928
  5. LANSOPRAZOLE [Concomitant]
     Indication: PROPHYLAXIS
     Dosage: 30 MG, UNK
     Dates: start: 20090911
  6. TRAZODONE HCL [Concomitant]
     Indication: ANXIETY
  7. CYCLIZINE [Concomitant]
     Indication: PROPHYLAXIS
     Dosage: 50 MG, UNK
     Dates: start: 20090911
  8. TEMAZ [Concomitant]
     Indication: SEDATION
     Dosage: 20 MG, UNK
     Dates: start: 20090911
  9. ACETAMINOPHEN [Concomitant]
     Indication: PAIN MANAGEMENT
     Dosage: 1 G, UNK
     Dates: start: 20090911
  10. TRAZODONE HCL [Concomitant]
     Indication: DEPRESSION
     Dosage: 50 MG, QD
     Route: 048
     Dates: start: 20100226
  11. DICLOFENAC DIETHYLAMINE [Concomitant]
     Indication: NECK PAIN
     Dosage: UNK
     Route: 061
     Dates: start: 20091027
  12. MOVICOL                            /01053601/ [Concomitant]
     Indication: CONSTIPATION
     Dosage: 13.8 G, UNK
     Route: 048
     Dates: start: 20091021
  13. CHLORPHENIRAMINE MALEATE [Concomitant]
     Indication: PROPHYLAXIS
     Dosage: 4 MG, UNK
     Dates: start: 20090911
  14. VELCADE [Suspect]
     Indication: MANTLE CELL LYMPHOMA
     Dosage: 2.9 MG, UNK
     Route: 042
     Dates: start: 20090911
  15. FUROSEMIDE [Concomitant]
     Indication: OEDEMA PERIPHERAL
     Dosage: UNK
     Route: 048
     Dates: start: 20091127
  16. MORPHINE SULFATE [Concomitant]
     Indication: PAIN
     Dosage: 10 MG, UNK
     Dates: start: 20090911
  17. IBUPROFEN [Concomitant]
     Indication: BONE PAIN
     Dosage: 400 MG, UNK
     Route: 048
     Dates: start: 20091027
  18. DOXORUBICIN HCL [Suspect]
     Indication: MANTLE CELL LYMPHOMA
     Dosage: 92 MG, UNK
     Route: 042
     Dates: start: 20090911
  19. DIAZEPAM [Concomitant]
     Indication: ANXIETY
     Dosage: 5 MG, UNK
     Dates: start: 20090918

REACTIONS (2)
  - PYREXIA [None]
  - LOWER RESPIRATORY TRACT INFECTION [None]
